FAERS Safety Report 5689851-3 (Version None)
Quarter: 2008Q2

REPORT INFORMATION
  Report Type: 
  Country: None (occurrence: None)
  Receive Date: 20080401
  Receipt Date: 20080327
  Transmission Date: 20081010
  Serious: Yes (Other)
  Sender: FDA-Public Use
  Company Number: US-RANBAXY-2008US-14076

PATIENT

DRUGS (1)
  1. CIPROFLOXACIN [Suspect]
     Indication: UPPER RESPIRATORY TRACT INFECTION
     Dosage: 500 MG, BID
     Route: 048
     Dates: start: 20080229

REACTIONS (5)
  - BRONCHOSPASM [None]
  - CHEST PAIN [None]
  - EPISTAXIS [None]
  - EYE PAIN [None]
  - RASH [None]
